FAERS Safety Report 7328684-9 (Version None)
Quarter: 2011Q1

REPORT INFORMATION
  Report Type: 
  Country: None (occurrence: None)
  Receive Date: 20110303
  Receipt Date: 20110209
  Transmission Date: 20110831
  Serious: No
  Sender: FDA-Public Use
  Company Number: US-B.I. PHARMACEUTICALS,INC./RIDGEFIELD-2011-BP-02155BP

PATIENT
  Sex: Male

DRUGS (2)
  1. METOPROLOL [Concomitant]
  2. PRADAXA [Suspect]
     Indication: ATRIAL FIBRILLATION
     Dosage: 300 MG
     Route: 048
     Dates: start: 20110114

REACTIONS (4)
  - DIZZINESS [None]
  - INSOMNIA [None]
  - FAECES DISCOLOURED [None]
  - GINGIVAL BLEEDING [None]
